FAERS Safety Report 9794561 (Version 2)
Quarter: 2014Q3

REPORT INFORMATION
  Report Type: Spontaneous
  Country: US (occurrence: US)
  Receive Date: 20140102
  Receipt Date: 20140915
  Transmission Date: 20150326
  Serious: Yes (Other)
  Sender: FDA-Public Use
  Company Number: US-TEVA-453986USA

PATIENT
  Age: 34 Year
  Sex: Female
  Weight: 93.07 kg

DRUGS (2)
  1. PLAN B ONE-STEP [Suspect]
     Active Substance: LEVONORGESTREL
     Indication: POST COITAL CONTRACEPTION
     Dosage: 1.5 MILLIGRAM DAILY;
     Route: 048
     Dates: start: 20131126, end: 20131126
  2. NATURE MADE FERROUS SULFATE [Concomitant]
     Indication: ANAEMIA

REACTIONS (5)
  - Pregnancy after post coital contraception [Unknown]
  - Menstruation delayed [Unknown]
  - Maternal exposure before pregnancy [Unknown]
  - Pelvic pain [Unknown]
  - Nipple pain [Unknown]

NARRATIVE: CASE EVENT DATE: 20131126
